FAERS Safety Report 22013672 (Version 1)
Quarter: 2023Q1

REPORT INFORMATION
  Report Type: Report from Study
  Country: CA (occurrence: CA)
  Receive Date: 20230220
  Receipt Date: 20230220
  Transmission Date: 20230417
  Serious: Yes (Other)
  Sender: FDA-Public Use
  Company Number: CA-CELLTRION INC.-2023CA003724

PATIENT

DRUGS (1)
  1. TRUXIMA [Suspect]
     Active Substance: RITUXIMAB-ABBS
     Indication: Cold type haemolytic anaemia
     Dosage: 750 MG IV WEEKLY X 4 WEEKS TOTAL: 3000MG
     Route: 042

REACTIONS (2)
  - Cold type haemolytic anaemia [Unknown]
  - Off label use [Unknown]
